FAERS Safety Report 16408312 (Version 1)
Quarter: 2019Q2

REPORT INFORMATION
  Report Type: Spontaneous
  Country: TW (occurrence: TW)
  Receive Date: 20190610
  Receipt Date: 20190610
  Transmission Date: 20190711
  Serious: Yes (Other)
  Sender: FDA-Public Use
  Company Number: TW-AMGEN-TWNSP2019090854

PATIENT
  Age: 41 Year
  Sex: Male

DRUGS (3)
  1. ENBREL [Suspect]
     Active Substance: ETANERCEPT
     Indication: ANKYLOSING SPONDYLITIS
     Dosage: 25 MILLIGRAM, Q6D
     Route: 058
     Dates: start: 20100501
  2. ARCOXIA [Concomitant]
     Active Substance: ETORICOXIB
     Dosage: 1 DOSAGE FORM, QD
  3. SULFASALAZINE. [Concomitant]
     Active Substance: SULFASALAZINE
     Dosage: 1 DOSAGE FORM, QD

REACTIONS (2)
  - Iritis [Not Recovered/Not Resolved]
  - Product use issue [Unknown]

NARRATIVE: CASE EVENT DATE: 20100501
